FAERS Safety Report 10626140 (Version 1)
Quarter: 2014Q4

REPORT INFORMATION
  Report Type: Spontaneous
  Country: US (occurrence: None)
  Receive Date: 20141121
  Receipt Date: 20141121
  Transmission Date: 20150529
  Serious: No
  Sender: FDA-Public Use
  Company Number: 163-10004-14094011

PATIENT
  Age: 56 Year
  Sex: Female

DRUGS (7)
  1. OTEZLA [Suspect]
     Active Substance: APREMILAST
     Indication: PSORIATIC ARTHROPATHY
     Route: 048
     Dates: start: 20140625
  2. SYMBICORT (FORMOTEROL FUMARATE, BUDESONIDE) [Concomitant]
  3. CALCIUM [Concomitant]
     Active Substance: CALCIUM
  4. ZYRTEC [Concomitant]
     Active Substance: CETIRIZINE HYDROCHLORIDE
  5. ASPIRIN (ACETYLSALICYLIC ACID) [Concomitant]
     Active Substance: ASPIRIN
  6. VITAMIN D3 [Concomitant]
     Active Substance: CHOLECALCIFEROL
  7. VITAMIN E (TOCOPHERYL ACETATE) [Concomitant]

REACTIONS (2)
  - Drug dose omission [None]
  - Frequent bowel movements [None]

NARRATIVE: CASE EVENT DATE: 20140917
